FAERS Safety Report 7772906-7 (Version None)
Quarter: 2011Q3

REPORT INFORMATION
  Report Type: 
  Country: None (occurrence: None)
  Receive Date: 20110922
  Receipt Date: 20110919
  Transmission Date: 20111222
  Serious: No
  Sender: FDA-Public Use
  Company Number: PHHY2011FI82448

PATIENT
  Sex: Female

DRUGS (1)
  1. EXELON [Suspect]
     Dosage: 4.6 MG,PER 24 HOUR
     Route: 062
     Dates: start: 20110101

REACTIONS (4)
  - WOUND SECRETION [None]
  - SKIN REACTION [None]
  - ECZEMA [None]
  - APPLICATION SITE DISCHARGE [None]
